FAERS Safety Report 6889302-7 (Version None)
Quarter: 2010Q3

REPORT INFORMATION
  Report Type: 
  Country: None (occurrence: None)
  Receive Date: 20100730
  Receipt Date: 20080130
  Transmission Date: 20110219
  Serious: No
  Sender: FDA-Public Use
  Company Number: US-PFIZER INC-2008010266

PATIENT
  Sex: Female
  Weight: 68.2 kg

DRUGS (3)
  1. LIPITOR [Suspect]
     Indication: BLOOD CHOLESTEROL INCREASED
     Dates: end: 20080128
  2. GLUCOPHAGE [Concomitant]
     Indication: DIABETES MELLITUS
  3. SYNTHROID [Concomitant]
     Indication: THYROID DISORDER

REACTIONS (3)
  - ALOPECIA [None]
  - BLOOD CHOLESTEROL ABNORMAL [None]
  - ECZEMA [None]
